FAERS Safety Report 22593772 (Version 1)
Quarter: 2023Q2

REPORT INFORMATION
  Report Type: Other
  Country: None (occurrence: AU)
  Receive Date: 20230613
  Receipt Date: 20230613
  Transmission Date: 20230722
  Serious: Yes (Hospitalization)
  Sender: FDA-Public Use
  Company Number: AU-OrBion Pharmaceuticals Private Limited-2142637

PATIENT
  Age: 42 Year
  Sex: Male
  Weight: 73 kg

DRUGS (1)
  1. OLANZAPINE [Suspect]
     Active Substance: OLANZAPINE
     Indication: Psychotic disorder
     Route: 065

REACTIONS (7)
  - Aspartate aminotransferase increased [Recovered/Resolved]
  - Blood alkaline phosphatase increased [Recovered/Resolved]
  - Alanine aminotransferase increased [Recovered/Resolved]
  - Hypercholesterolaemia [Recovered/Resolved]
  - Blood glucose increased [Recovered/Resolved]
  - Familial hypertriglyceridaemia [Recovered/Resolved]
  - Lipase increased [Recovered/Resolved]
